FAERS Safety Report 18701555 (Version 3)
Quarter: 2021Q1

REPORT INFORMATION
  Report Type: Spontaneous
  Country: US (occurrence: US)
  Receive Date: 20210105
  Receipt Date: 20210119
  Transmission Date: 20210419
  Serious: Yes (Other)
  Sender: FDA-Public Use
  Company Number: US-PFIZER INC-2020519820

PATIENT
  Sex: Female

DRUGS (1)
  1. PROTONIX [Suspect]
     Active Substance: PANTOPRAZOLE SODIUM
     Dosage: UNK

REACTIONS (9)
  - Gastrooesophageal reflux disease [Unknown]
  - Choking [Unknown]
  - Nasal dryness [Unknown]
  - Oesophageal spasm [Unknown]
  - Dry throat [Unknown]
  - Abdominal discomfort [Unknown]
  - Dry skin [Unknown]
  - Sjogren^s syndrome [Unknown]
  - Gastric disorder [Unknown]
